FAERS Safety Report 12072697 (Version 1)
Quarter: 2016Q1

REPORT INFORMATION
  Report Type: Spontaneous
  Country: FR (occurrence: FR)
  Receive Date: 20160212
  Receipt Date: 20160212
  Transmission Date: 20160526
  Serious: Yes (Hospitalization)
  Sender: FDA-Public Use
  Company Number: FR-PFIZER INC-2016082808

PATIENT
  Age: 88 Year
  Sex: Male

DRUGS (9)
  1. RAMIPRIL. [Suspect]
     Active Substance: RAMIPRIL
     Indication: HYPERTENSION
     Dosage: 5 MG, 1X/DAY
     Route: 048
  2. CONDROSULF [Suspect]
     Active Substance: CHONDROITIN SULFATE (CHICKEN)
     Indication: OSTEOARTHRITIS
     Dosage: 1200 MG, 1X/DAY
     Route: 048
     Dates: end: 20160104
  3. OXEOL [Suspect]
     Active Substance: BAMBUTEROL HYDROCHLORIDE
     Indication: CHRONIC OBSTRUCTIVE PULMONARY DISEASE
     Dosage: 20 MG, 1X/DAY
     Route: 048
     Dates: end: 20160104
  4. DUROGESIC [Suspect]
     Active Substance: FENTANYL
     Indication: ARTHRALGIA
     Dosage: 25 UG, EVERY 72 HOURS
     Route: 062
     Dates: end: 20160104
  5. NOCTAMIDE [Suspect]
     Active Substance: LORMETAZEPAM
     Indication: INSOMNIA
     Dosage: 2 MG, 1X/DAY
     Route: 048
     Dates: end: 20160104
  6. FORLAX [Suspect]
     Active Substance: POLYETHYLENE GLYCOL 4000
     Indication: CONSTIPATION
     Dosage: 0.5 DF, 1X/DAY
     Route: 048
     Dates: end: 20160104
  7. TAMSULOSIN HYDROCHLORIDE. [Suspect]
     Active Substance: TAMSULOSIN HYDROCHLORIDE
     Indication: PROSTATOMEGALY
     Dosage: 0.4 MG, 1X/DAY
     Route: 048
  8. PARACETAMOL [Concomitant]
     Active Substance: ACETAMINOPHEN
     Dosage: 1 G, UNK
  9. CLOPIDOGREL [Concomitant]
     Active Substance: CLOPIDOGREL BISULFATE
     Dosage: 75 MG, UNK

REACTIONS (3)
  - Fall [Recovered/Resolved]
  - Diarrhoea [Recovered/Resolved]
  - Orthostatic hypotension [Recovered/Resolved]

NARRATIVE: CASE EVENT DATE: 20160102
